FAERS Safety Report 20582410 (Version 1)
Quarter: 2022Q1

REPORT INFORMATION
  Report Type: Spontaneous
  Country: None (occurrence: US)
  Receive Date: 20220311
  Receipt Date: 20220311
  Transmission Date: 20220424
  Serious: No
  Sender: FDA-Public Use
  Company Number: US-Appco Pharma LLC-2126666

PATIENT
  Sex: Female

DRUGS (1)
  1. MICONAZOLE [Suspect]
     Active Substance: MICONAZOLE
     Indication: Vulvovaginal mycotic infection
     Route: 067
     Dates: start: 20220111, end: 20220117

REACTIONS (2)
  - Product use issue [Unknown]
  - Drug ineffective [Unknown]
